FAERS Safety Report 21174388 (Version 1)
Quarter: 2022Q3

REPORT INFORMATION
  Report Type: Spontaneous
  Country: US (occurrence: US)
  Receive Date: 20220804
  Receipt Date: 20220804
  Transmission Date: 20221026
  Serious: No
  Sender: FDA-Public Use
  Company Number: US-PURDUE-USA-2022-0293922

PATIENT
  Sex: Male

DRUGS (1)
  1. LIDOCAINE [Suspect]
     Active Substance: LIDOCAINE
     Indication: Pain
     Dosage: 5 %, UNK
     Route: 062
     Dates: start: 2015

REACTIONS (2)
  - Drug ineffective [Not Recovered/Not Resolved]
  - Product adhesion issue [Unknown]
